FAERS Safety Report 10263521 (Version 2)
Quarter: 2018Q2

REPORT INFORMATION
  Report Type: Spontaneous
  Country: DE (occurrence: DE)
  Receive Date: 20140626
  Receipt Date: 20180420
  Transmission Date: 20180711
  Serious: Yes (Death, Life-Threatening, Hospitalization, Other)
  Sender: FDA-Public Use
  Company Number: PHHY2014DE074766

PATIENT
  Age: 42 Year
  Sex: Male
  Weight: 106 kg

DRUGS (8)
  1. IMIPRAMINE [Interacting]
     Active Substance: IMIPRAMINE
     Indication: ANTIDEPRESSANT THERAPY
  2. AMISULPRIDE [Interacting]
     Active Substance: AMISULPRIDE
     Indication: SCHIZOPHRENIA
     Dosage: 400 MG, UNK
     Route: 065
  3. HALOPERIDOL. [Interacting]
     Active Substance: HALOPERIDOL
     Indication: SCHIZOPHRENIA
     Dosage: 20 MG, PRN
     Route: 065
  4. BIPERIDEN [Interacting]
     Active Substance: BIPERIDEN
     Indication: CHOLINERGIC SYNDROME
  5. BIPERIDEN [Interacting]
     Active Substance: BIPERIDEN
     Dosage: 4 MG, UNK
     Route: 065
  6. IMIPRAMINE [Suspect]
     Active Substance: IMIPRAMINE
     Indication: SCHIZOPHRENIA
     Dosage: 100 MG, DAILY
     Route: 065
  7. BIPERIDEN [Interacting]
     Active Substance: BIPERIDEN
     Indication: SCHIZOPHRENIA
  8. DESIPRAMINE [Concomitant]
     Active Substance: DESIPRAMINE
     Indication: PRODUCT USED FOR UNKNOWN INDICATION
     Route: 065

REACTIONS (18)
  - Neuroleptic malignant syndrome [Fatal]
  - Dyspnoea [Fatal]
  - Hypotonia [Fatal]
  - General physical health deterioration [Fatal]
  - Drug interaction [Fatal]
  - Brain oedema [Fatal]
  - Pulmonary oedema [Fatal]
  - Toxicity to various agents [Fatal]
  - Mydriasis [Fatal]
  - Muscle rigidity [Fatal]
  - Seizure [Fatal]
  - Tachycardia [Fatal]
  - Hyperthermia [Fatal]
  - Blood pH decreased [Fatal]
  - Ventricular fibrillation [Fatal]
  - Loss of consciousness [Fatal]
  - Hyperhidrosis [Unknown]
  - Drug level increased [Unknown]
